FAERS Safety Report 25436137 (Version 1)
Quarter: 2025Q2

REPORT INFORMATION
  Report Type: Spontaneous
  Country: KR (occurrence: KR)
  Receive Date: 20250614
  Receipt Date: 20250614
  Transmission Date: 20250716
  Serious: No
  Sender: ASTELLAS
  Company Number: KR-ASTELLAS-2025-AER-031206

PATIENT
  Age: 70 Year
  Sex: Male

DRUGS (2)
  1. VESICARE [Suspect]
     Active Substance: SOLIFENACIN SUCCINATE
     Indication: Hypertonic bladder
     Dosage: ONE TABLET ONCE DAILY
     Route: 065
     Dates: start: 202505
  2. MIRABEGRON [Suspect]
     Active Substance: MIRABEGRON
     Indication: Hypertonic bladder
     Dosage: ONE PILL DAILY
     Route: 065

REACTIONS (5)
  - Chronic gastritis [Not Recovered/Not Resolved]
  - Dyschezia [Unknown]
  - Dry mouth [Unknown]
  - Product dispensing error [Unknown]
  - Drug ineffective [Unknown]
